FAERS Safety Report 8181293-4 (Version None)
Quarter: 2012Q1

REPORT INFORMATION
  Report Type: 
  Country: None (occurrence: None)
  Receive Date: 20120302
  Receipt Date: 20120221
  Transmission Date: 20120608
  Serious: Yes (Other)
  Sender: FDA-Public Use
  Company Number: FR-ACTELION PHARMACEUTICALS LTD-A-CH2012-61584

PATIENT
  Age: 79 Year
  Sex: Male

DRUGS (13)
  1. CLOPIDOGREL [Concomitant]
  2. SILDENAFIL [Concomitant]
  3. FLUINDIONE [Concomitant]
  4. MOLSIDOMINA [Concomitant]
  5. VENTAVIS [Suspect]
     Dosage: UNK
     Route: 055
  6. TRACLEER [Suspect]
     Indication: PULMONARY ARTERIAL HYPERTENSION
     Dosage: 125 MG, BID
     Route: 048
  7. POTASSIUM CHLORIDE [Concomitant]
  8. VENTAVIS [Suspect]
     Indication: PULMONARY ARTERIAL HYPERTENSION
     Dosage: 5 ?G, UNK
     Route: 055
  9. FUROSEMIDE [Concomitant]
  10. TIOPRONIN [Concomitant]
  11. PRAVASTATIN [Concomitant]
  12. RAMIPRIL [Concomitant]
  13. AMIODARONE HCL [Concomitant]

REACTIONS (6)
  - HAEMOGLOBIN DECREASED [None]
  - POLYPECTOMY [None]
  - GASTROINTESTINAL HAEMORRHAGE [None]
  - TRANSFUSION [None]
  - ANGIODYSPLASIA [None]
  - COLONIC POLYP [None]
